FAERS Safety Report 16325831 (Version 1)
Quarter: 2019Q2

REPORT INFORMATION
  Report Type: Spontaneous
  Country: US (occurrence: US)
  Receive Date: 20190516
  Receipt Date: 20190516
  Transmission Date: 20190711
  Serious: No
  Sender: FDA-Public Use
  Company Number: None

PATIENT
  Age: 37 Year
  Sex: Female
  Weight: 57.6 kg

DRUGS (1)
  1. ISONIAZID. [Suspect]
     Active Substance: ISONIAZID
     Indication: LATENT TUBERCULOSIS
     Dates: start: 20190504, end: 20190515

REACTIONS (6)
  - Product prescribing error [None]
  - Balance disorder [None]
  - Vertigo [None]
  - Aphasia [None]
  - Confusional state [None]
  - Neurotoxicity [None]

NARRATIVE: CASE EVENT DATE: 20190511
